FAERS Safety Report 8641947 (Version 5)
Quarter: 2015Q2

REPORT INFORMATION
  Report Type: Report from Study
  Country: US (occurrence: US)
  Receive Date: 20120628
  Receipt Date: 20150408
  Transmission Date: 20150821
  Serious: Yes (Other)
  Sender: FDA-Public Use
  Company Number: US-ACTELION-A-US2010-35843

PATIENT
  Age: 46 Year
  Sex: Female

DRUGS (11)
  1. OXYCODONE [Concomitant]
     Active Substance: OXYCODONE
  2. LORAZEPAM. [Concomitant]
     Active Substance: LORAZEPAM
  3. FLOLAN [Concomitant]
     Active Substance: EPOPROSTENOL SODIUM
  4. COMPAZINE [Concomitant]
     Active Substance: PROCHLORPERAZINE MALEATE
  5. ZOLPIDEM [Concomitant]
     Active Substance: ZOLPIDEM\ZOLPIDEM TARTRATE
  6. POTASSIUM CHLORIDE. [Concomitant]
     Active Substance: POTASSIUM CHLORIDE
  7. FUROSEMIDE. [Concomitant]
     Active Substance: FUROSEMIDE
  8. TRACLEER [Suspect]
     Active Substance: BOSENTAN\BOSENTAN MONOHYDRATE
     Indication: PULMONARY ARTERIAL HYPERTENSION
     Dosage: UNK
     Route: 048
  9. COUMADIN [Concomitant]
     Active Substance: WARFARIN SODIUM
  10. ONDANSETRON [Concomitant]
     Active Substance: ONDANSETRON
  11. PROZAC [Concomitant]
     Active Substance: FLUOXETINE HYDROCHLORIDE

REACTIONS (9)
  - Fatigue [Unknown]
  - Mass [Unknown]
  - Colon cancer [Unknown]
  - Chemotherapy [Unknown]
  - Dyspnoea exertional [Unknown]
  - Urticaria [Unknown]
  - Colectomy [Unknown]
  - Pericardial effusion [Unknown]
  - K-ras gene mutation [Unknown]

NARRATIVE: CASE EVENT DATE: 20100402
